FAERS Safety Report 8491562-6 (Version None)
Quarter: 2012Q3

REPORT INFORMATION
  Report Type: 
  Country: None (occurrence: None)
  Receive Date: 20120706
  Receipt Date: 20120629
  Transmission Date: 20120928
  Serious: Yes (Hospitalization)
  Sender: FDA-Public Use
  Company Number: US-JNJFOC-20120308340

PATIENT
  Age: 59 Year
  Sex: Male
  Weight: 73.8 kg

DRUGS (5)
  1. CHLORDIAZEPOXIDE [Concomitant]
     Indication: ALCOHOL WITHDRAWAL SYNDROME
  2. TYLENOL PM [Suspect]
     Indication: INSOMNIA
     Dosage: 3 TABLETS TWICE DAILY FOR AT LEAST SEVERAL DAYS, AND PERHAPS MUCH LONGER
     Route: 065
  3. ATENOLOL [Concomitant]
     Indication: PRODUCT USED FOR UNKNOWN INDICATION
  4. VICODIN [Suspect]
     Indication: BACK PAIN
     Dosage: UP TO 3 TABLETS PER DAY
     Route: 065
  5. DOXEPIN [Concomitant]
     Indication: PRODUCT USED FOR UNKNOWN INDICATION

REACTIONS (2)
  - MULTIPLE DRUG OVERDOSE [None]
  - HEPATIC NECROSIS [None]
